FAERS Safety Report 6883017-7 (Version None)
Quarter: 2010Q3

REPORT INFORMATION
  Report Type: 
  Country: None (occurrence: None)
  Receive Date: 20100729
  Receipt Date: 20100729
  Transmission Date: 20110219
  Serious: Yes (Other)
  Sender: FDA-Public Use
  Company Number: None

PATIENT
  Sex: Female
  Weight: 6.804 kg

DRUGS (1)
  1. CONCENTRATED TYLENOL INFANT DROPS [Suspect]
     Indication: PYREXIA
     Dosage: 0.8 ML ONCE PO
     Route: 048
     Dates: start: 20100420

REACTIONS (4)
  - ABNORMAL FAECES [None]
  - FAECES DISCOLOURED [None]
  - MUCOUS STOOLS [None]
  - PRODUCT QUALITY ISSUE [None]
